FAERS Safety Report 5993037-2 (Version None)
Quarter: 2008Q4

REPORT INFORMATION
  Report Type: 
  Country: None (occurrence: None)
  Receive Date: 20081210
  Receipt Date: 20081210
  Transmission Date: 20090506
  Serious: No
  Sender: FDA-Public Use
  Company Number: None

PATIENT
  Age: 77 Year
  Sex: Male
  Weight: 84.37 kg

DRUGS (1)
  1. CYANOCOBALAMIN [Suspect]
     Indication: VITAMIN B12 DEFICIENCY
     Dates: start: 20080702, end: 20080707

REACTIONS (4)
  - CONJUNCTIVAL HYPERAEMIA [None]
  - PERIORBITAL OEDEMA [None]
  - PRURITUS [None]
  - VASODILATATION [None]
